FAERS Safety Report 9266252 (Version 1)
Quarter: 2013Q2

REPORT INFORMATION
  Report Type: Spontaneous
  Country: NZ (occurrence: NZ)
  Receive Date: 20130502
  Receipt Date: 20130502
  Transmission Date: 20140414
  Serious: Yes (Other)
  Sender: FDA-Public Use
  Company Number: NZ-009507513-1304NZL017152

PATIENT
  Age: 64 Year
  Sex: Male

DRUGS (2)
  1. SINEMET [Suspect]
     Dosage: UNK
     Route: 048
     Dates: start: 200404
  2. SINEMET [Suspect]
     Dosage: UNK
     Route: 048

REACTIONS (4)
  - Blindness [Unknown]
  - Vision blurred [Unknown]
  - Freezing phenomenon [Unknown]
  - Dyskinesia [Unknown]
